FAERS Safety Report 25990210 (Version 1)
Quarter: 2025Q4

REPORT INFORMATION
  Report Type: Spontaneous
  Country: CN (occurrence: CN)
  Receive Date: 20251103
  Receipt Date: 20251103
  Transmission Date: 20260117
  Serious: Yes (Other)
  Sender: JOHNSON AND JOHNSON
  Company Number: CN-JNJFOC-20251031509

PATIENT
  Age: 62 Year
  Sex: Female
  Weight: 51 kg

DRUGS (2)
  1. DARZALEX [Suspect]
     Active Substance: DARATUMUMAB
     Indication: Chemotherapy
     Dosage: MEDICATION END DATE: 28-SEP-2025
     Route: 041
     Dates: start: 20250927, end: 20250927
  2. DARZALEX [Suspect]
     Active Substance: DARATUMUMAB
     Indication: Plasma cell myeloma

REACTIONS (7)
  - Dyspnoea [Recovering/Resolving]
  - Dyspnoea [Recovering/Resolving]
  - Hyperhidrosis [Recovering/Resolving]
  - Blood pressure decreased [Recovering/Resolving]
  - Breath sounds abnormal [Recovering/Resolving]
  - Oxygen saturation decreased [Recovering/Resolving]
  - Infusion related reaction [Recovering/Resolving]

NARRATIVE: CASE EVENT DATE: 20250927
